FAERS Safety Report 14290323 (Version 1)
Quarter: 2017Q4

REPORT INFORMATION
  Report Type: Spontaneous
  Country: CN (occurrence: CN)
  Receive Date: 20171215
  Receipt Date: 20171215
  Transmission Date: 20180321
  Serious: Yes (Other)
  Sender: FDA-Public Use
  Company Number: US-ASTRAZENECA-2017SF27860

PATIENT
  Age: 25202 Day
  Sex: Female
  Weight: 50 kg

DRUGS (2)
  1. GINKGO BILOBA [Suspect]
     Active Substance: GINKGO
     Indication: ARTERIOSCLEROSIS
     Dosage: 3 TABLETS, THREE TIMES A DAY
     Route: 048
     Dates: start: 20171016, end: 20171016
  2. BLOPRESS [Suspect]
     Active Substance: CANDESARTAN CILEXETIL
     Indication: HYPERTENSION
     Route: 048
     Dates: start: 20171016, end: 20171016

REACTIONS (3)
  - Headache [Recovering/Resolving]
  - Dizziness [Recovering/Resolving]
  - Blood pressure increased [Recovering/Resolving]

NARRATIVE: CASE EVENT DATE: 20171016
